FAERS Safety Report 5125596-6 (Version None)
Quarter: 2006Q4

REPORT INFORMATION
  Report Type: 
  Country: None (occurrence: None)
  Receive Date: 20061006
  Receipt Date: 20060928
  Transmission Date: 20070319
  Serious: Yes (Hospitalization)
  Sender: FDA-Public Use
  Company Number: HQWYE412129SEP06

PATIENT
  Age: 50 Year
  Sex: Female
  Weight: 61 kg

DRUGS (13)
  1. RAPAMUNE [Suspect]
     Indication: PROPHYLAXIS AGAINST TRANSPLANT REJECTION
     Dosage: SEE IMAGE
     Route: 048
     Dates: start: 20050114, end: 20060923
  2. RAPAMUNE [Suspect]
     Indication: PROPHYLAXIS AGAINST TRANSPLANT REJECTION
     Dosage: SEE IMAGE
     Route: 048
     Dates: start: 20060924, end: 20060927
  3. RAPAMUNE [Suspect]
     Indication: PROPHYLAXIS AGAINST TRANSPLANT REJECTION
     Dosage: SEE IMAGE
     Route: 048
     Dates: start: 20060928
  4. DELTASONE [Suspect]
     Indication: PROPHYLAXIS AGAINST TRANSPLANT REJECTION
     Dosage: 5 MG 1X PER 1 DAY, ORAL
     Route: 048
  5. TACROLIMUS (TACROLIMUS, ) [Suspect]
     Indication: PROPHYLAXIS AGAINST TRANSPLANT REJECTION
  6. ZENAPAX [Suspect]
     Indication: PROPHYLAXIS AGAINST TRANSPLANT REJECTION
  7. DILAUDID [Concomitant]
  8. CELEXA [Concomitant]
  9. OS-CAL (CALCIUM/ERGOCALCIFEROL) [Concomitant]
  10. NOVOLOG [Concomitant]
  11. LIPITOR [Concomitant]
  12. LANTUS [Concomitant]
  13. LOPRESSOR [Concomitant]

REACTIONS (10)
  - ABDOMINAL PAIN [None]
  - AORTIC ARTERIOSCLEROSIS [None]
  - BLOOD ALKALINE PHOSPHATASE INCREASED [None]
  - CHOLELITHIASIS [None]
  - HAEMODYNAMIC INSTABILITY [None]
  - HEPATIC STEATOSIS [None]
  - HERNIA [None]
  - HYPOVOLAEMIA [None]
  - LIPASE INCREASED [None]
  - RENAL FAILURE ACUTE [None]
